FAERS Safety Report 4541335-1 (Version None)
Quarter: 2004Q4

REPORT INFORMATION
  Report Type: 
  Country: None (occurrence: None)
  Receive Date: 20041227
  Receipt Date: 20041217
  Transmission Date: 20050328
  Serious: Yes (Death, Hospitalization, Other)
  Sender: FDA-Public Use
  Company Number: 2004-11-1396

PATIENT
  Age: 31 Year
  Sex: Male

DRUGS (2)
  1. INTRON A [Suspect]
     Indication: CHRONIC MYELOID LEUKAEMIA
     Dosage: 6 MIU TIW INTRAMUSCULAR
     Route: 030
     Dates: start: 19930201, end: 19940803
  2. HYDROXYCARBAMIDE [Suspect]

REACTIONS (14)
  - CARDIAC FAILURE CONGESTIVE [None]
  - CARDIAC TAMPONADE [None]
  - CARDIOMEGALY [None]
  - CHRONIC MYELOID LEUKAEMIA [None]
  - CONDITION AGGRAVATED [None]
  - CRACKLES LUNG [None]
  - HAEMOLYTIC URAEMIC SYNDROME [None]
  - HYPERTENSION [None]
  - MICROANGIOPATHY [None]
  - PERICARDIAL HAEMORRHAGE [None]
  - PULMONARY CONGESTION [None]
  - RASH PAPULAR [None]
  - SHOCK [None]
  - THROMBOTIC MICROANGIOPATHY [None]
